FAERS Safety Report 9858176 (Version 1)
Quarter: 2014Q1

REPORT INFORMATION
  Report Type: Spontaneous
  Country: BE (occurrence: BE)
  Receive Date: 20140131
  Receipt Date: 20140131
  Transmission Date: 20141002
  Serious: Yes (Hospitalization)
  Sender: FDA-Public Use
  Company Number: BE-JNJFOC-20140112715

PATIENT
  Age: 4 Year
  Sex: Male

DRUGS (1)
  1. RISPERDAL [Suspect]
     Indication: ABNORMAL BEHAVIOUR
     Dosage: 1 SOUP SPOON
     Route: 065
     Dates: start: 20131207

REACTIONS (5)
  - Toxic encephalopathy [Recovering/Resolving]
  - Toxicity to various agents [Recovering/Resolving]
  - Incorrect dose administered [Unknown]
  - Abnormal behaviour [Recovering/Resolving]
  - Abdominal pain [Recovering/Resolving]
